FAERS Safety Report 10633073 (Version 1)
Quarter: 2014Q4

REPORT INFORMATION
  Report Type: Spontaneous
  Country: US (occurrence: US)
  Receive Date: 20141205
  Receipt Date: 20141205
  Transmission Date: 20150529
  Serious: No
  Sender: FDA-Public Use
  Company Number: US-BRISTOL-MYERS SQUIBB COMPANY-21416912

PATIENT
  Age: 78 Year
  Sex: Female

DRUGS (1)
  1. ELIQUIS [Suspect]
     Active Substance: APIXABAN
     Indication: CEREBROVASCULAR ACCIDENT PROPHYLAXIS

REACTIONS (7)
  - Abdominal distension [Unknown]
  - Vomiting [Unknown]
  - Fatigue [Unknown]
  - Abdominal discomfort [Unknown]
  - Nausea [Unknown]
  - Night sweats [Unknown]
  - Chills [Unknown]
